FAERS Safety Report 8590967-2 (Version None)
Quarter: 2012Q3

REPORT INFORMATION
  Report Type: 
  Country: None (occurrence: None)
  Receive Date: 20120813
  Receipt Date: 20120807
  Transmission Date: 20120928
  Serious: Yes (Other)
  Sender: FDA-Public Use
  Company Number: JP-VERTEX PHARMACEUTICALS INC.-AE-2012-007598

PATIENT
  Age: 61 Year
  Sex: Male

DRUGS (9)
  1. TELAVIC [Suspect]
     Indication: HEPATITIS C
     Route: 048
     Dates: start: 20120210, end: 20120503
  2. REBETOL [Concomitant]
     Route: 048
     Dates: start: 20120420
  3. AMLODIPINE [Concomitant]
     Route: 048
  4. LEVOTHYROXINE SODIUM [Concomitant]
     Route: 048
  5. REBETOL [Concomitant]
     Indication: HEPATITIS C
     Route: 048
     Dates: start: 20120210, end: 20120301
  6. REBETOL [Concomitant]
     Route: 048
     Dates: start: 20120309, end: 20120419
  7. REBAMIPIDE [Concomitant]
     Route: 048
  8. REBETOL [Concomitant]
     Route: 048
     Dates: start: 20120302, end: 20120308
  9. PEG-INTRON [Concomitant]
     Indication: HEPATITIS C
     Route: 058
     Dates: start: 20120210

REACTIONS (10)
  - BLOOD CREATININE INCREASED [None]
  - HYPOAESTHESIA [None]
  - ERYTHEMA [None]
  - DISCOMFORT [None]
  - HAEMOGLOBIN DECREASED [None]
  - RASH ERYTHEMATOUS [None]
  - PAIN [None]
  - HYPERURICAEMIA [None]
  - PRURITUS [None]
  - ARTHRALGIA [None]
